FAERS Safety Report 21823575 (Version 1)
Quarter: 2023Q1

REPORT INFORMATION
  Report Type: Other
  Country: BE (occurrence: BE)
  Receive Date: 20230105
  Receipt Date: 20230105
  Transmission Date: 20230417
  Serious: Yes (Death)
  Sender: FDA-Public Use
  Company Number: BE-ROCHE-3226390

PATIENT
  Age: 63 Year
  Sex: Male

DRUGS (1)
  1. ALECTINIB [Suspect]
     Active Substance: ALECTINIB
     Indication: Lung adenocarcinoma
     Route: 065
     Dates: start: 201803, end: 201907

REACTIONS (3)
  - Disease progression [Fatal]
  - Neoplasm progression [Fatal]
  - Drug resistance [Not Recovered/Not Resolved]
